FAERS Safety Report 10227651 (Version 1)
Quarter: 2014Q2

REPORT INFORMATION
  Report Type: Spontaneous
  Country: US (occurrence: US)
  Receive Date: 20140610
  Receipt Date: 20140610
  Transmission Date: 20141212
  Serious: Yes (Hospitalization)
  Sender: FDA-Public Use
  Company Number: US-ASTRAZENECA-2014SE38640

PATIENT
  Age: 747 Month
  Sex: Female
  Weight: 65.8 kg

DRUGS (9)
  1. SYMBICORT [Suspect]
     Indication: ASTHMA
     Dosage: 160 4.5MCG, 2 PUFFS TWO TIMES A DAY
     Route: 055
     Dates: start: 2009
  2. SYMBICORT [Suspect]
     Indication: MULTIPLE ALLERGIES
     Dosage: 160 4.5MCG, 2 PUFFS TWO TIMES A DAY
     Route: 055
     Dates: start: 2009
  3. CRESTOR [Suspect]
     Route: 048
     Dates: start: 2012
  4. SINGULAIR [Concomitant]
     Indication: MULTIPLE ALLERGIES
     Route: 048
  5. PROZAC [Concomitant]
     Route: 048
     Dates: start: 2000
  6. LANSOPRAZOLE [Concomitant]
     Route: 048
     Dates: start: 2000
  7. INSULIN PUNP [Concomitant]
     Indication: DIABETES MELLITUS
  8. XYZAL [Concomitant]
     Indication: MULTIPLE ALLERGIES
  9. LEVOTHYROXINE [Concomitant]
     Indication: THYROID DISORDER
     Route: 048
     Dates: start: 2000

REACTIONS (5)
  - Sinusitis [Unknown]
  - Appendicitis perforated [Recovered/Resolved]
  - Dyspnoea [Unknown]
  - Intentional product misuse [Unknown]
  - Drug dose omission [Unknown]
